APPROVED DRUG PRODUCT: TRIAMCINOLONE ACETONIDE
Active Ingredient: TRIAMCINOLONE ACETONIDE
Strength: 40MG/ML
Dosage Form/Route: INJECTABLE;INJECTION
Application: A218421 | Product #001 | TE Code: AB
Applicant: DR REDDYS LABORATORIES LTD
Approved: Apr 11, 2025 | RLD: No | RS: No | Type: RX